FAERS Safety Report 22333888 (Version 1)
Quarter: 2023Q2

REPORT INFORMATION
  Report Type: Spontaneous
  Country: US (occurrence: US)
  Receive Date: 20230517
  Receipt Date: 20230517
  Transmission Date: 20230721
  Serious: No
  Sender: FDA-Public Use
  Company Number: US-AIMMUNE THERAPEUTICS, INC.-2022AIMT02847

PATIENT

DRUGS (9)
  1. PALFORZIA [Suspect]
     Active Substance: PEANUT
     Indication: Food allergy
     Dosage: IDE (0.5-6MG), ONCE
     Route: 048
     Dates: start: 20221207, end: 20221207
  2. PALFORZIA [Suspect]
     Active Substance: PEANUT
     Dosage: IDE 0.5 MG, ONCE, LAST DOSE PRIOR TO EVENT
     Route: 048
     Dates: start: 20221207, end: 20221207
  3. PALFORZIA [Suspect]
     Active Substance: PEANUT
     Dosage: IDE 1.5 MG, ONCE, LAST DOSE PRIOR TO EVENT
     Route: 048
     Dates: start: 20221207, end: 20221207
  4. PALFORZIA [Suspect]
     Active Substance: PEANUT
     Dosage: IDE 6 MG, ONCE, LAST DOSE PRIOR TO EVENT
     Route: 048
     Dates: start: 20221207, end: 20221207
  5. PALFORZIA [Suspect]
     Active Substance: PEANUT
     Dosage: 3 MG, 1X/DAY, UPDOSED
     Route: 048
     Dates: start: 20221208, end: 20221221
  6. PALFORZIA [Suspect]
     Active Substance: PEANUT
     Dosage: 3 MG, ONCE, LAST DOSE PRIOR TO EVENT
     Route: 048
     Dates: start: 202212, end: 202212
  7. PALFORZIA [Suspect]
     Active Substance: PEANUT
     Dosage: 6 MG, 1X/DAY, UPDOSED
     Route: 048
     Dates: start: 20221222, end: 20221226
  8. PALFORZIA [Suspect]
     Active Substance: PEANUT
     Dosage: 6 MG, ONCE, LAST DOSE PRIOR TO EVENT
     Route: 048
     Dates: start: 20221226, end: 20221226
  9. PALFORZIA [Suspect]
     Active Substance: PEANUT
     Dosage: 6 MG, 1X/DAY, RESTARTED
     Route: 048
     Dates: start: 20221228

REACTIONS (2)
  - Abdominal pain upper [Recovered/Resolved]
  - Abdominal pain upper [Recovered/Resolved]

NARRATIVE: CASE EVENT DATE: 20221207
